FAERS Safety Report 23042788 (Version 3)
Quarter: 2023Q4

REPORT INFORMATION
  Report Type: Report from Study
  Country: US (occurrence: US)
  Receive Date: 20231009
  Receipt Date: 20231123
  Transmission Date: 20240110
  Serious: Yes (Other)
  Sender: FDA-Public Use
  Company Number: US-002147023-NVSC2023US212985

PATIENT
  Sex: Female

DRUGS (2)
  1. XIIDRA [Suspect]
     Active Substance: LIFITEGRAST
     Indication: Off label use
     Dosage: UNK, BID
     Route: 065
     Dates: start: 20230526
  2. XIIDRA [Suspect]
     Active Substance: LIFITEGRAST
     Dosage: 5 ML, BID
     Route: 047
     Dates: start: 20230713

REACTIONS (12)
  - Blindness [Unknown]
  - Blindness unilateral [Unknown]
  - Suicidal ideation [Unknown]
  - Dizziness [Unknown]
  - Anxiety [Unknown]
  - Sleep deficit [Unknown]
  - Insomnia [Unknown]
  - Eye disorder [Unknown]
  - Headache [Unknown]
  - Balance disorder [Unknown]
  - Maternal exposure during pregnancy [Unknown]
  - Off label use [Unknown]
